FAERS Safety Report 10237026 (Version 1)
Quarter: 2014Q1

REPORT INFORMATION
  Report Type: Spontaneous
  Country: US (occurrence: None)
  Receive Date: 20140306
  Receipt Date: 20140306
  Transmission Date: 20141002
  Serious: Yes (Hospitalization)
  Sender: FDA-Public Use
  Company Number: 163-21880-13081668

PATIENT
  Age: 80 Year
  Sex: Female

DRUGS (10)
  1. REVLIMID (LENALIDOMIDE) (CAPSULES) [Suspect]
     Indication: MYELODYSPLASTIC SYNDROME
     Route: 048
     Dates: start: 20100908
  2. COREG (CARVEDILOL) (TABLETS) [Concomitant]
  3. ALDACTONE (SPIRONOLACTONE) (TABLETS) [Concomitant]
  4. LYRICA (PREGABALIN) (TABLETS) [Concomitant]
  5. GLIPIZIDE (GLIPIZIDE) (TABLETS) [Concomitant]
  6. ASA (ACETYLSALICYLIC ACID) (ENTERIC-COATED TABLET) [Concomitant]
  7. FUROSEMIDE (FUROSEMIDE) (UNKNOWN) [Concomitant]
  8. ALTACE (RAMIPRIL) (UNKNOWN) [Concomitant]
  9. PLAVIX (CLOPIDOGREL SULFATE) (UNKNOWN) [Concomitant]
  10. VITAMIN D3 (COLECALCIFEROL) (CAPSULES) [Concomitant]

REACTIONS (1)
  - Infection [None]
